FAERS Safety Report 6212338-6 (Version None)
Quarter: 2009Q2

REPORT INFORMATION
  Report Type: 
  Country: None (occurrence: None)
  Receive Date: 20090529
  Receipt Date: 20090513
  Transmission Date: 20091009
  Serious: Yes (Life-Threatening, Hospitalization)
  Sender: FDA-Public Use
  Company Number: 2009001075

PATIENT
  Age: 61 Year
  Sex: Male

DRUGS (1)
  1. ERLOTINIB (ERLOTINIB) (TABLET) (ERLOTINIB) [Suspect]
     Indication: NON-SMALL CELL LUNG CANCER
     Dosage: 150 MG, QD, ORAL
     Route: 048
     Dates: start: 20090303, end: 20090318

REACTIONS (19)
  - ACNE [None]
  - ATELECTASIS [None]
  - BRONCHIAL SECRETION RETENTION [None]
  - CANDIDIASIS [None]
  - DRUG TOXICITY [None]
  - DRY SKIN [None]
  - EMBOLISM [None]
  - ERYTHEMA [None]
  - INTERSTITIAL LUNG DISEASE [None]
  - METABOLIC DISORDER [None]
  - PNEUMOTHORAX [None]
  - POST PROCEDURAL COMPLICATION [None]
  - PULMONARY HYPERTENSION [None]
  - PULMONARY OEDEMA [None]
  - PURULENCE [None]
  - RASH [None]
  - RENAL FAILURE [None]
  - RESPIRATORY FAILURE [None]
  - TOBACCO USER [None]
